FAERS Safety Report 10733140 (Version 2)
Quarter: 2015Q1

REPORT INFORMATION
  Report Type: Report from Study
  Country: BR (occurrence: None)
  Receive Date: 20150120
  Receipt Date: 20150202
  Transmission Date: 20150721
  Serious: No
  Sender: FDA-Public Use
  Company Number: BR2014GSK047462

PATIENT
  Age: 3 Week
  Sex: Female

DRUGS (2)
  1. EFAVIRENZ (EFAVIRENZ) [Suspect]
     Active Substance: EFAVIRENZ
     Route: 064
     Dates: start: 20141016
  2. LAMIVUDINE AND ZIDOVUDINE [Suspect]
     Active Substance: LAMIVUDINE\ZIDOVUDINE
     Route: 064
     Dates: start: 20141016

REACTIONS (1)
  - Anaemia [None]

NARRATIVE: CASE EVENT DATE: 20150112
